FAERS Safety Report 9291269 (Version 1)
Quarter: 2013Q2

REPORT INFORMATION
  Report Type: Report from Study
  Country: AR (occurrence: AR)
  Receive Date: 20130515
  Receipt Date: 20130515
  Transmission Date: 20140414
  Serious: Yes (Other)
  Sender: FDA-Public Use
  Company Number: PHHY2013AR048420

PATIENT
  Sex: Female

DRUGS (2)
  1. DIOVAN [Suspect]
     Indication: MYOCARDIAL INFARCTION
     Dosage: 1 DF(80 UNITS NOT SPECIFIED), DAILY
     Route: 048
  2. DIOVAN [Suspect]
     Indication: OFF LABEL USE

REACTIONS (2)
  - Sleep apnoea syndrome [Unknown]
  - Blood pressure increased [Unknown]
